FAERS Safety Report 24553683 (Version 1)
Quarter: 2024Q4

REPORT INFORMATION
  Report Type: Spontaneous
  Country: US (occurrence: US)
  Receive Date: 20241028
  Receipt Date: 20241028
  Transmission Date: 20250115
  Serious: No
  Sender: ROCHE
  Company Number: US-ROCHE-3544770

PATIENT
  Age: 11 Year
  Sex: Female

DRUGS (1)
  1. NUTROPIN AQ [Suspect]
     Active Substance: SOMATROPIN
     Indication: Short stature
     Dosage: NUSPIN 10MG/2ML
     Route: 058

REACTIONS (3)
  - Product complaint [Unknown]
  - Intentional device misuse [Unknown]
  - No adverse event [Unknown]
